FAERS Safety Report 15622984 (Version 2)
Quarter: 2019Q2

REPORT INFORMATION
  Report Type: Spontaneous
  Country: US (occurrence: US)
  Receive Date: 20181115
  Receipt Date: 20190607
  Transmission Date: 20190711
  Serious: No
  Sender: FDA-Public Use
  Company Number: US-ASTRAZENECA-2018SF37468

PATIENT
  Age: 20265 Day
  Sex: Female
  Weight: 116.6 kg

DRUGS (4)
  1. BYDUREON [Suspect]
     Active Substance: EXENATIDE
     Indication: GLYCOSYLATED HAEMOGLOBIN INCREASED
     Route: 065
     Dates: start: 201812
  2. FARXIGA [Suspect]
     Active Substance: DAPAGLIFLOZIN PROPANEDIOL
     Indication: TYPE 2 DIABETES MELLITUS
     Route: 048
     Dates: start: 20181013
  3. BYDUREON BCISE [Suspect]
     Active Substance: EXENATIDE
     Indication: TYPE 2 DIABETES MELLITUS
     Route: 058
     Dates: start: 20181014
  4. BYDUREON [Suspect]
     Active Substance: EXENATIDE
     Indication: GLYCOSYLATED HAEMOGLOBIN INCREASED
     Route: 065
     Dates: start: 201904, end: 20190503

REACTIONS (18)
  - Pollakiuria [Not Recovered/Not Resolved]
  - Dyspnoea [Unknown]
  - Injection site pain [Recovered/Resolved]
  - Skin discolouration [Unknown]
  - Weight increased [Unknown]
  - Dysphagia [Unknown]
  - Off label use [Not Recovered/Not Resolved]
  - Increased appetite [Unknown]
  - Rash pruritic [Recovered/Resolved]
  - Injection site injury [Not Recovered/Not Resolved]
  - Hyperhidrosis [Unknown]
  - Dizziness [Recovered/Resolved]
  - Injection site nodule [Recovered/Resolved]
  - Flatulence [Unknown]
  - Abdominal distension [Unknown]
  - Glycosylated haemoglobin increased [Unknown]
  - Hiccups [Unknown]
  - Injection site scar [Not Recovered/Not Resolved]

NARRATIVE: CASE EVENT DATE: 20181013
